FAERS Safety Report 19611280 (Version 1)
Quarter: 2021Q3

REPORT INFORMATION
  Report Type: Spontaneous
  Country: US (occurrence: US)
  Receive Date: 20210726
  Receipt Date: 20210726
  Transmission Date: 20211014
  Serious: No
  Sender: FDA-Public Use
  Company Number: US-PFIZER INC-2021882068

PATIENT
  Age: 80 Year
  Sex: Female
  Weight: 78.02 kg

DRUGS (5)
  1. TETRACYCLINE [Suspect]
     Active Substance: TETRACYCLINE
     Dosage: UNK
  2. LEVAQUIN [Suspect]
     Active Substance: LEVOFLOXACIN
     Dosage: UNK
  3. CEFTIN [CEFTRIAXONE] [Suspect]
     Active Substance: CEFTRIAXONE
     Dosage: UNK
  4. AZITHROMYCIN ANHYDROUS. [Suspect]
     Active Substance: AZITHROMYCIN ANHYDROUS
     Dosage: UNK
  5. ZITHROMAX [Suspect]
     Active Substance: AZITHROMYCIN DIHYDRATE
     Dosage: UNK

REACTIONS (3)
  - Drug hypersensitivity [Unknown]
  - Diarrhoea [Unknown]
  - Urticaria [Unknown]
